FAERS Safety Report 16393982 (Version 1)
Quarter: 2019Q2

REPORT INFORMATION
  Report Type: Spontaneous
  Country: CL (occurrence: CL)
  Receive Date: 20190605
  Receipt Date: 20190605
  Transmission Date: 20190711
  Serious: Yes (Hospitalization, Other)
  Sender: FDA-Public Use
  Company Number: CL-ASTELLAS-2019US023793

PATIENT
  Age: 28 Year
  Sex: Male

DRUGS (3)
  1. TACROLIMUS. [Suspect]
     Active Substance: TACROLIMUS
     Indication: PRODUCT USED FOR UNKNOWN INDICATION
     Dosage: UNK UNK, UNKNOWN FREQ.
     Route: 065
  2. MYCOPHENOLATE MOFETIL. [Suspect]
     Active Substance: MYCOPHENOLATE MOFETIL
     Indication: RENAL TRANSPLANT
     Route: 065
  3. CICLOSPORIN [Suspect]
     Active Substance: CYCLOSPORINE
     Indication: IMMUNOSUPPRESSION
     Dosage: UNK UNK, UNKNOWN FREQ.
     Route: 065

REACTIONS (27)
  - Hypogammaglobulinaemia [Unknown]
  - Bone marrow failure [Unknown]
  - Muscle spasms [Unknown]
  - Headache [Unknown]
  - Anaemia [Unknown]
  - Pyrexia [Recovered/Resolved]
  - Abdominal pain [Unknown]
  - Azotaemia [Unknown]
  - C-reactive protein increased [Recovered/Resolved]
  - Leukopenia [Recovered/Resolved]
  - Urine output decreased [Unknown]
  - Arteriosclerosis [Unknown]
  - Diarrhoea [Recovered/Resolved]
  - Lymphocele [Unknown]
  - Pain [Unknown]
  - Thrombocytopenia [Unknown]
  - Thrombophlebitis [Unknown]
  - Vomiting [Unknown]
  - Weight decreased [Unknown]
  - Ascites [Unknown]
  - Hypoalbuminaemia [Unknown]
  - Pleural effusion [Unknown]
  - Haemophagocytic lymphohistiocytosis [Unknown]
  - Kidney transplant rejection [Recovering/Resolving]
  - Blood creatinine increased [Recovered/Resolved]
  - Metabolic acidosis [Unknown]
  - Splenomegaly [Unknown]
